APPROVED DRUG PRODUCT: RAPAMUNE
Active Ingredient: SIROLIMUS
Strength: 1MG/ML
Dosage Form/Route: SOLUTION;ORAL
Application: N021083 | Product #001 | TE Code: AA
Applicant: PF PRISM CV
Approved: Sep 15, 1999 | RLD: Yes | RS: Yes | Type: RX